FAERS Safety Report 9505550 (Version 1)
Quarter: 2013Q1

REPORT INFORMATION
  Report Type: Spontaneous
  Country: US (occurrence: None)
  Receive Date: 20130220
  Receipt Date: 20130220
  Transmission Date: 20140127
  Serious: No
  Sender: FDA-Public Use
  Company Number: 1000041521

PATIENT
  Age: 61 Year
  Sex: Female

DRUGS (6)
  1. VIIBYRD (VILAZODONE HYDROCHLORIDE) [Suspect]
     Indication: DEPRESSION
     Dosage: 10 MG (10 MG, 1 IN 1 D), ORAL
     Route: 048
     Dates: start: 20121219, end: 20121225
  2. PROVIGIL (MODAFINIL) (MODAFINIL) [Concomitant]
  3. SOMA (CARISOPRODOL) (CARISOPRODOL) [Concomitant]
  4. CELEBREX (CELECOXIB) [Concomitant]
  5. VITAMIN B12 (COBALAMIN) (COBALAMIN) [Concomitant]
  6. VITAMIN D (VITAMIN D) (VITAMIN D) [Concomitant]

REACTIONS (3)
  - Diarrhoea [None]
  - Abdominal pain upper [None]
  - Flatulence [None]
